FAERS Safety Report 20777876 (Version 1)
Quarter: 2022Q2

REPORT INFORMATION
  Report Type: Spontaneous
  Country: US (occurrence: US)
  Receive Date: 20220503
  Receipt Date: 20220503
  Transmission Date: 20220721
  Serious: Yes (Other)
  Sender: FDA-Public Use
  Company Number: US-BAYER-2022A062848

PATIENT
  Age: 30 Year
  Sex: Female

DRUGS (6)
  1. ASPIRIN [Suspect]
     Active Substance: ASPIRIN
  2. METOPROLOL [Concomitant]
     Active Substance: METOPROLOL
  3. IRON [Concomitant]
     Active Substance: IRON
  4. MINERALS\VITAMINS [Concomitant]
     Active Substance: MINERALS\VITAMINS
  5. ESMOLOL [Concomitant]
     Active Substance: ESMOLOL HYDROCHLORIDE
  6. NICARDIPINE [Concomitant]
     Active Substance: NICARDIPINE

REACTIONS (3)
  - Premature delivery [None]
  - Contraindicated product administered [None]
  - Maternal exposure during pregnancy [None]
